FAERS Safety Report 21302922 (Version 1)
Quarter: 2022Q3

REPORT INFORMATION
  Report Type: Spontaneous
  Country: US (occurrence: None)
  Receive Date: 20220907
  Receipt Date: 20220907
  Transmission Date: 20221027
  Serious: Yes (Disabling)
  Sender: FDA-Public Use
  Company Number: 2022A303603

PATIENT
  Sex: Male

DRUGS (1)
  1. FASENRA [Suspect]
     Active Substance: BENRALIZUMAB
     Dosage: 30.0MG/ML UNKNOWN
     Route: 058

REACTIONS (8)
  - Blindness [Unknown]
  - Condition aggravated [Unknown]
  - Asthma [Unknown]
  - Obstructive airways disorder [Unknown]
  - Nervous system disorder [Unknown]
  - Somnolence [Unknown]
  - Needle issue [Unknown]
  - Product dose omission issue [Unknown]
